FAERS Safety Report 9702718 (Version 3)
Quarter: 2014Q1

REPORT INFORMATION
  Report Type: Spontaneous
  Country: US (occurrence: US)
  Receive Date: 20131121
  Receipt Date: 20140327
  Transmission Date: 20141002
  Serious: Yes (Hospitalization)
  Sender: FDA-Public Use
  Company Number: US-B.I. PHARMACEUTICALS,INC./RIDGEFIELD-2013-BI-37726BP

PATIENT
  Age: 89 Year
  Sex: Female
  Weight: 68.04 kg

DRUGS (15)
  1. PRADAXA [Suspect]
     Indication: ATRIAL FIBRILLATION
     Dosage: 300 MG
     Route: 048
     Dates: start: 20110304, end: 20111116
  2. VITAMINS [Concomitant]
     Route: 065
  3. NIFEDIPINE [Concomitant]
     Dosage: 90 MG
     Route: 048
  4. OMEPRAZOLE [Concomitant]
     Route: 065
  5. PREVACID [Concomitant]
     Dosage: 30 MG
     Route: 048
  6. SYNTHROID [Concomitant]
     Dosage: 0.05 MG
     Route: 048
  7. METOPROLOL [Concomitant]
     Dosage: 50 MG
     Route: 048
  8. LOVASTATIN [Concomitant]
     Route: 065
  9. ADVAIR [Concomitant]
     Route: 065
  10. ACETAMINOPHEN [Concomitant]
     Route: 048
  11. LOSARTAN POTASSIUM [Concomitant]
     Dosage: 50 MG
     Route: 048
  12. VITAMIN B12 [Concomitant]
     Route: 048
  13. VITAMIN C [Concomitant]
     Route: 065
  14. VITAMIN E [Concomitant]
     Route: 065
  15. YUCCA [Concomitant]
     Route: 065

REACTIONS (3)
  - Gastrointestinal haemorrhage [Unknown]
  - Coagulopathy [Unknown]
  - Renal failure [Unknown]
